FAERS Safety Report 8909431 (Version 1)
Quarter: 2012Q4

REPORT INFORMATION
  Report Type: Spontaneous
  Country: NL (occurrence: None)
  Receive Date: 20121109
  Receipt Date: 20121109
  Transmission Date: 20130627
  Serious: Yes (Death)
  Sender: FDA-Public Use
  Company Number: 1474239

PATIENT
  Age: 75 Year
  Sex: Female

DRUGS (5)
  1. PAMIDRONIC ACID [Suspect]
     Indication: OSTEOPOROSIS
     Dosage: every 3 months
     Route: 042
  2. ZOLEDRONIC ACID [Suspect]
     Indication: OSTEOPOROSIS
     Dosage: once a year
     Route: 041
  3. PREDNISONE [Suspect]
     Indication: AUTOIMMUNE HEPATITIS
  4. VITAMIN D /00107901/ [Concomitant]
  5. CALCIUM [Concomitant]

REACTIONS (6)
  - Respiratory failure [None]
  - Candida pneumonia [None]
  - Osteonecrosis of jaw [None]
  - Drug dependence [None]
  - Malnutrition [None]
  - Pseudomonas infection [None]
